FAERS Safety Report 8996661 (Version 1)
Quarter: 2013Q1

REPORT INFORMATION
  Report Type: Spontaneous
  Country: US (occurrence: US)
  Receive Date: 20130104
  Receipt Date: 20130104
  Transmission Date: 20140127
  Serious: No
  Sender: FDA-Public Use
  Company Number: US-BAYER-2013-000559

PATIENT
  Sex: Male

DRUGS (9)
  1. AVELOX [Suspect]
     Dosage: UNK
  2. PLAVIX [Concomitant]
  3. COUMADIN [Concomitant]
  4. LISINOPRIL [Concomitant]
  5. COREG [Concomitant]
  6. AMIODARON [Concomitant]
  7. ACETYLSALICYLIC ACID [Concomitant]
  8. ZOCOR [Concomitant]
  9. CHANTIX [Concomitant]

REACTIONS (1)
  - Drug hypersensitivity [None]
